FAERS Safety Report 11983396 (Version 1)
Quarter: 2016Q1

REPORT INFORMATION
  Report Type: Spontaneous
  Country: JP (occurrence: JP)
  Receive Date: 20160201
  Receipt Date: 20160201
  Transmission Date: 20160526
  Serious: Yes (Hospitalization, Other)
  Sender: FDA-Public Use
  Company Number: JP-ASTRAZENECA-2016SE10048

PATIENT
  Age: 65 Year
  Sex: Male

DRUGS (6)
  1. CIPROFLOXACIN. [Suspect]
     Active Substance: CIPROFLOXACIN
     Indication: PERITONITIS
     Route: 041
  2. VANCOMYCIN HYDROCHLORIDE. [Suspect]
     Active Substance: VANCOMYCIN HYDROCHLORIDE
     Route: 065
  3. MINOCYCLINE HYDROCHLORIDE. [Suspect]
     Active Substance: MINOCYCLINE HYDROCHLORIDE
     Indication: PERITONITIS
     Route: 041
  4. NAFAMOSTAT MESILATE [Concomitant]
     Active Substance: NAFAMOSTAT MESYLATE
     Route: 065
  5. MEROPEN [Suspect]
     Active Substance: MEROPENEM
     Route: 041
  6. TEICOPLANIN [Suspect]
     Active Substance: TEICOPLANIN
     Indication: PERITONITIS
     Route: 041

REACTIONS (3)
  - Eosinophilic pneumonia acute [Unknown]
  - Eosinophil count increased [Unknown]
  - Computerised tomogram thorax abnormal [Unknown]
